FAERS Safety Report 7227142-X (Version None)
Quarter: 2011Q1

REPORT INFORMATION
  Report Type: 
  Country: None (occurrence: None)
  Receive Date: 20110114
  Receipt Date: 20110104
  Transmission Date: 20110831
  Serious: Yes (Other)
  Sender: FDA-Public Use
  Company Number: DE-ROCHE-752633

PATIENT
  Age: 35 Year
  Sex: Female

DRUGS (2)
  1. AVASTIN [Suspect]
     Indication: METASTASES TO LUNG
     Dosage: RECEIVED 2 CYCLES
     Route: 065
  2. TAXOL [Suspect]
     Indication: METASTASES TO LUNG
     Dosage: RECEIVED 2 CYCLES
     Route: 065

REACTIONS (1)
  - LUNG ABSCESS [None]
